FAERS Safety Report 9789951 (Version 1)
Quarter: 2013Q4

REPORT INFORMATION
  Report Type: Report from Study
  Country: US (occurrence: US)
  Receive Date: 20131231
  Receipt Date: 20131231
  Transmission Date: 20140711
  Serious: No
  Sender: FDA-Public Use
  Company Number: US-JNJFOC-20131216820

PATIENT
  Age: 18 Year
  Sex: Female

DRUGS (1)
  1. DURAGESIC [Suspect]
     Indication: BONE PAIN
     Route: 062

REACTIONS (2)
  - Drug prescribing error [Unknown]
  - Off label use [Unknown]
